FAERS Safety Report 8245490-1 (Version None)
Quarter: 2012Q1

REPORT INFORMATION
  Report Type: 
  Country: None (occurrence: None)
  Receive Date: 20120329
  Receipt Date: 20120320
  Transmission Date: 20120608
  Serious: Yes (Death)
  Sender: FDA-Public Use
  Company Number: US-BAXTER-2012BAX000097

PATIENT
  Sex: Female
  Weight: 75.364 kg

DRUGS (1)
  1. GAMMAGARD LIQUID [Suspect]
     Route: 058
     Dates: start: 20120118

REACTIONS (5)
  - RESPIRATORY FAILURE [None]
  - PNEUMONIA [None]
  - DEATH [None]
  - RENAL FAILURE [None]
  - STREPTOCOCCAL BACTERAEMIA [None]
